FAERS Safety Report 21573228 (Version 1)
Quarter: 2022Q4

REPORT INFORMATION
  Report Type: Spontaneous
  Country: US (occurrence: None)
  Receive Date: 20221109
  Receipt Date: 20221109
  Transmission Date: 20230113
  Serious: Yes (Other)
  Sender: FDA-Public Use
  Company Number: None

PATIENT
  Age: 40 Year
  Sex: Male
  Weight: 78.75 kg

DRUGS (2)
  1. .DELTA.8-TETRAHYDROCANNABINOL\HERBALS [Suspect]
     Active Substance: .DELTA.8-TETRAHYDROCANNABINOL\HERBALS
     Indication: Restless legs syndrome
     Dates: start: 20220101, end: 20221109
  2. NEXIUM [Concomitant]
     Active Substance: ESOMEPRAZOLE MAGNESIUM

REACTIONS (8)
  - Feeling abnormal [None]
  - Chest pain [None]
  - Cardiac disorder [None]
  - Syncope [None]
  - Loss of consciousness [None]
  - Disorientation [None]
  - Headache [None]
  - Flushing [None]

NARRATIVE: CASE EVENT DATE: 20221109
